FAERS Safety Report 5103704-0 (Version None)
Quarter: 2006Q3

REPORT INFORMATION
  Report Type: 
  Country: None (occurrence: None)
  Receive Date: 20060731
  Receipt Date: 20060109
  Transmission Date: 20061208
  Serious: Yes (Hospitalization)
  Sender: FDA-Public Use
  Company Number: US-JNJFOC-20051102034

PATIENT
  Age: 40 Year
  Sex: Male

DRUGS (4)
  1. RISPERDAL [Suspect]
     Indication: SCHIZOAFFECTIVE DISORDER
     Dosage: 8 MG, IN 1 DAY, ORAL
     Route: 048
  2. ABILIFY (TABLET) ARIPIPRAZOLE [Concomitant]
  3. DEPAKOTE [Concomitant]
  4. PROZAC [Concomitant]

REACTIONS (2)
  - GYNAECOMASTIA [None]
  - HALLUCINATION, AUDITORY [None]
